FAERS Safety Report 7827290 (Version 4)
Quarter: 2013Q3

REPORT INFORMATION
  Report Type: Spontaneous
  Country: US (occurrence: US)
  Receive Date: 20110225
  Receipt Date: 20130828
  Transmission Date: 20140515
  Serious: Yes (Hospitalization)
  Sender: FDA-Public Use
  Company Number: US-B.I. PHARMACEUTICALS,INC./RIDGEFIELD-2011-BP-03859BP

PATIENT
  Age: 74 Year
  Sex: Female
  Weight: 111.13 kg

DRUGS (12)
  1. PRADAXA [Suspect]
     Indication: ANTICOAGULANT THERAPY
     Dosage: 300 MG
     Route: 048
     Dates: start: 20110109, end: 20110209
  2. PRADAXA [Suspect]
     Indication: CEREBROVASCULAR ACCIDENT PROPHYLAXIS
  3. ASPIRIN [Suspect]
     Dosage: 81 MG
     Dates: end: 20110209
  4. ALLOPURINOL [Concomitant]
     Dosage: 200 MG
     Dates: start: 2006
  5. DIOVAN [Concomitant]
     Dosage: 80 MG
     Dates: start: 2011, end: 2012
  6. MULTAQ [Concomitant]
     Dosage: 800 MG
     Dates: start: 2011
  7. LASIX [Concomitant]
     Dosage: 40 MG
     Route: 048
     Dates: start: 2005
  8. LEVOTHYROXINE [Concomitant]
     Dosage: 175 MCG
     Dates: start: 2006
  9. HYOSCYAMINE SULFATE [Concomitant]
  10. PRAVASTATIN [Concomitant]
     Dosage: 40 MG
     Dates: start: 2011
  11. LYRICA [Concomitant]
     Dosage: 150 MG
     Dates: start: 2011
  12. INDEROL [Concomitant]
     Dosage: 80 MG

REACTIONS (6)
  - Gastric ulcer haemorrhage [Unknown]
  - Gastrointestinal haemorrhage [Unknown]
  - Coagulopathy [Unknown]
  - Gastric ulcer [Unknown]
  - Dysphagia [Unknown]
  - Diarrhoea [Unknown]
